FAERS Safety Report 5504853-5 (Version None)
Quarter: 2007Q4

REPORT INFORMATION
  Report Type: 
  Country: None (occurrence: None)
  Receive Date: 20071102
  Receipt Date: 20071025
  Transmission Date: 20080405
  Serious: Yes (Hospitalization)
  Sender: FDA-Public Use
  Company Number: PHBS2007US17979

PATIENT
  Age: 64 Year
  Sex: Female

DRUGS (8)
  1. PAMIDRONATE DISODIUM [Suspect]
  2. ANASTROZOLE [Concomitant]
  3. EXEMESTANE [Concomitant]
  4. FULVESTRANT [Concomitant]
  5. EPOGEN [Concomitant]
  6. CAPECITABINE [Concomitant]
  7. PACLITAXEL [Concomitant]
  8. DOCETAXEL [Concomitant]

REACTIONS (12)
  - BONE DEBRIDEMENT [None]
  - BONE DISORDER [None]
  - BONE GRAFT [None]
  - COMPUTERISED TOMOGRAM ABNORMAL [None]
  - JOINT RECONSTRUCTION [None]
  - LIGAMENT DISORDER [None]
  - OSTEONECROSIS [None]
  - OSTEOSCLEROSIS [None]
  - PAIN [None]
  - PERIPHERAL NERVE OPERATION [None]
  - STOMATITIS [None]
  - TOOTH EXTRACTION [None]
